FAERS Safety Report 6245655-4 (Version None)
Quarter: 2009Q2

REPORT INFORMATION
  Report Type: 
  Country: None (occurrence: None)
  Receive Date: 20090619
  Receipt Date: 20090303
  Transmission Date: 20091009
  Serious: No
  Sender: FDA-Public Use
  Company Number: SPV1-2009-00385

PATIENT
  Sex: Male

DRUGS (1)
  1. VYVANSE [Suspect]

REACTIONS (3)
  - DRUG DIVERSION [None]
  - NO ADVERSE EVENT [None]
  - THEFT [None]
